FAERS Safety Report 21154217 (Version 1)
Quarter: 2022Q3

REPORT INFORMATION
  Report Type: Spontaneous
  Country: US (occurrence: US)
  Receive Date: 20220801
  Receipt Date: 20220801
  Transmission Date: 20221026
  Serious: Yes (Other)
  Sender: FDA-Public Use
  Company Number: US-SA-SAC20220728001730

PATIENT
  Sex: Male

DRUGS (7)
  1. ALPROLIX [Suspect]
     Active Substance: EFTRENONACOG ALFA
     Indication: Acquired haemophilia
     Dosage: INFUSE 6767 IU (ONE VIAL OF 4427 IU AND TWO VIALS OF 1170 IU)
     Route: 042
  2. ALPROLIX [Suspect]
     Active Substance: EFTRENONACOG ALFA
     Indication: Haemorrhage
  3. ABILIFY [Concomitant]
     Active Substance: ARIPIPRAZOLE
  4. ACETASOL HC [Concomitant]
     Active Substance: ACETIC ACID\HYDROCORTISONE
  5. AZITHROMYCIN [Concomitant]
     Active Substance: AZITHROMYCIN
     Dosage: 150MG
  6. GENTAMICIN [Concomitant]
     Active Substance: GENTAMICIN
     Dosage: 1MG
  7. SERTRALINE [Concomitant]
     Active Substance: SERTRALINE HYDROCHLORIDE
     Dosage: 20MG

REACTIONS (2)
  - Haemorrhage [Unknown]
  - Pain [Unknown]
